FAERS Safety Report 5014030-2 (Version None)
Quarter: 2006Q2

REPORT INFORMATION
  Report Type: 
  Country: None (occurrence: None)
  Receive Date: 20060414
  Receipt Date: 20060129
  Transmission Date: 20061013
  Serious: No
  Sender: FDA-Public Use
  Company Number: 2006SP000517

PATIENT
  Age: 29 Year
  Sex: Male
  Weight: 113.3993 kg

DRUGS (7)
  1. LUNESTA [Suspect]
     Indication: INSOMNIA
     Dosage: 3 MG;HS;ORAL
     Route: 048
     Dates: start: 20051201
  2. OXCARBAZEPINE [Concomitant]
  3. BUSPAR [Concomitant]
  4. PAXIL [Concomitant]
  5. XANAX [Concomitant]
  6. TRAZODONE HCL [Concomitant]
  7. AMBIEN [Concomitant]

REACTIONS (1)
  - DYSGEUSIA [None]
